FAERS Safety Report 7367022-2 (Version None)
Quarter: 2011Q1

REPORT INFORMATION
  Report Type: 
  Country: None (occurrence: None)
  Receive Date: 20110322
  Receipt Date: 20110315
  Transmission Date: 20110831
  Serious: Yes (Other)
  Sender: FDA-Public Use
  Company Number: US-ACTELION-A-NJ2011-44095

PATIENT

DRUGS (17)
  1. TRACLEER [Concomitant]
     Indication: PULMONARY ARTERIAL HYPERTENSION
     Dosage: 125 MG, BID
     Route: 048
     Dates: start: 20100305
  2. CARVEDILOL [Concomitant]
  3. COZAAR [Concomitant]
  4. NITROGLYCERIN [Concomitant]
  5. FOSAMAX [Concomitant]
  6. ASPIRIN [Concomitant]
  7. BEPOTASTINE [Concomitant]
  8. VENTAVIS [Suspect]
     Indication: PULMONARY ARTERIAL HYPERTENSION
     Dosage: 2.5 ?G, 4X/DAY
     Route: 055
     Dates: start: 20110117, end: 20110214
  9. BENAZEPRIL [Concomitant]
  10. LASIX [Concomitant]
  11. CADUET [Concomitant]
  12. FISH OIL [Concomitant]
  13. POTASSIUM CHLORIDE [Concomitant]
  14. PLAVIX [Concomitant]
  15. NIACIN [Concomitant]
  16. SERTRALINE HYDROCHLORIDE [Concomitant]
  17. CALCIUM W/VITAMIN D [Concomitant]

REACTIONS (1)
  - INFLUENZA LIKE ILLNESS [None]
